FAERS Safety Report 8578109-0 (Version None)
Quarter: 2012Q3

REPORT INFORMATION
  Report Type: 
  Country: None (occurrence: None)
  Receive Date: 20120808
  Receipt Date: 20120807
  Transmission Date: 20120928
  Serious: Yes (Other)
  Sender: FDA-Public Use
  Company Number: PHHY2012NL068030

PATIENT
  Sex: Male

DRUGS (4)
  1. ZOMETA [Suspect]
     Dosage: 4 MG/100 ML SOLUTION 1X PER 28 DAYS
     Route: 042
     Dates: start: 20110110
  2. ZOMETA [Suspect]
     Indication: PROSTATE CANCER METASTATIC
     Dosage: 4 MG/100 ML SOLUTION 1X PER 28 DAYS
     Route: 042
  3. ZOMETA [Suspect]
     Dosage: 4 MG/100 ML SOLUTION 1X PER 28 DAYS
     Route: 042
     Dates: start: 20120703
  4. ZOMETA [Suspect]
     Dosage: 4 MG/100 ML SOLUTION 1X PER 28 DAYS
     Route: 042
     Dates: start: 20120601

REACTIONS (2)
  - THERAPY CESSATION [None]
  - TERMINAL STATE [None]
